FAERS Safety Report 7347607-X (Version None)
Quarter: 2011Q1

REPORT INFORMATION
  Report Type: 
  Country: None (occurrence: None)
  Receive Date: 20110218
  Receipt Date: 20101007
  Transmission Date: 20110831
  Serious: Yes (Hospitalization)
  Sender: FDA-Public Use
  Company Number: 2010026606

PATIENT
  Sex: Female

DRUGS (2)
  1. HIZENTRA [Suspect]
     Indication: IMMUNODEFICIENCY COMMON VARIABLE
     Dosage: SEE IMAGE SUBCUTANEOUS
     Route: 058
     Dates: start: 20100915
  2. HIZENTRA [Suspect]

REACTIONS (9)
  - FATIGUE [None]
  - NAUSEA [None]
  - CHILLS [None]
  - INFUSION SITE PRURITUS [None]
  - INFLUENZA LIKE ILLNESS [None]
  - INFUSION SITE ERYTHEMA [None]
  - INFUSION SITE WARMTH [None]
  - SERUM SICKNESS [None]
  - INFUSION SITE URTICARIA [None]
